FAERS Safety Report 14211780 (Version 1)
Quarter: 2017Q4

REPORT INFORMATION
  Report Type: Spontaneous
  Country: US (occurrence: US)
  Receive Date: 20171122
  Receipt Date: 20171122
  Transmission Date: 20180321
  Serious: Yes (Other)
  Sender: FDA-Public Use
  Company Number: US-LPDUSPRD-20171579

PATIENT

DRUGS (1)
  1. NITROGLYCERIN INJECTION, USP (4810-10) [Suspect]
     Active Substance: NITROGLYCERIN
     Dosage: UNKNOWN
     Route: 065

REACTIONS (1)
  - Cardiac arrest [Unknown]
